FAERS Safety Report 6259890-2 (Version None)
Quarter: 2009Q3

REPORT INFORMATION
  Report Type: 
  Country: None (occurrence: None)
  Receive Date: 20090708
  Receipt Date: 20090622
  Transmission Date: 20100115
  Serious: Yes (Other)
  Sender: FDA-Public Use
  Company Number: PHHY2009CA25070

PATIENT
  Sex: Male

DRUGS (1)
  1. LOPRESOR [Suspect]
     Dosage: 40 MG, QD
     Route: 048

REACTIONS (2)
  - PAIN [None]
  - PLEURISY [None]
